FAERS Safety Report 9052829 (Version 1)
Quarter: 2013Q1

REPORT INFORMATION
  Report Type: Spontaneous
  Country: US (occurrence: US)
  Receive Date: 20130207
  Receipt Date: 20130207
  Transmission Date: 20140127
  Serious: No
  Sender: FDA-Public Use
  Company Number: US-009507513-1302USA003123

PATIENT
  Sex: Female

DRUGS (1)
  1. MIRALAX [Suspect]
     Indication: PRODUCT USED FOR UNKNOWN INDICATION
     Dosage: 34 G, ONCE
     Route: 048
     Dates: start: 20121203

REACTIONS (4)
  - Haemorrhage [Unknown]
  - Abdominal pain upper [Unknown]
  - Diarrhoea [Unknown]
  - Overdose [Unknown]
